FAERS Safety Report 20702486 (Version 1)
Quarter: 2022Q2

REPORT INFORMATION
  Report Type: Spontaneous
  Country: US (occurrence: US)
  Receive Date: 20220412
  Receipt Date: 20220412
  Transmission Date: 20220720
  Serious: No
  Sender: FDA-Public Use
  Company Number: US-GALDERMA-US2022004387

PATIENT

DRUGS (5)
  1. PROACTIV MD ADAPALENE ACNE TREATMENT [Suspect]
     Active Substance: ADAPALENE
     Indication: Scar
     Dosage: 1 DOSAGE FORM, QD
     Route: 061
     Dates: start: 202203
  2. PROACTIV MD ADAPALENE ACNE TREATMENT [Suspect]
     Active Substance: ADAPALENE
     Dosage: 1 DOSAGE FORM, BID
     Route: 061
     Dates: end: 202203
  3. Proactiv MD Ultra Hydrating Moisturizer [Concomitant]
     Indication: Scar
     Dosage: 1 DOSAGE FORM, BID
     Route: 061
     Dates: start: 202203, end: 202203
  4. Proactiv MD Ultra Gentle Cleanser [Concomitant]
     Indication: Scar
     Dosage: 1 DOSAGE FORM, BID
     Route: 061
     Dates: start: 202203, end: 202203
  5. Proactiv Post Acne Scar Gel [Concomitant]
     Indication: Scar
     Dosage: 1 DOSAGE FORM, BID
     Route: 061
     Dates: start: 202203, end: 202203

REACTIONS (7)
  - Dry skin [Not Recovered/Not Resolved]
  - Skin irritation [Not Recovered/Not Resolved]
  - Skin wound [Not Recovered/Not Resolved]
  - Skin burning sensation [Not Recovered/Not Resolved]
  - Inappropriate schedule of product administration [Recovered/Resolved]
  - Overdose [Recovered/Resolved]
  - Product use in unapproved indication [Recovered/Resolved]

NARRATIVE: CASE EVENT DATE: 20220301
